FAERS Safety Report 17895935 (Version 1)
Quarter: 2020Q2

REPORT INFORMATION
  Report Type: Spontaneous
  Country: US (occurrence: US)
  Receive Date: 20200615
  Receipt Date: 20200615
  Transmission Date: 20200714
  Serious: Yes (Death)
  Sender: FDA-Public Use
  Company Number: None

PATIENT
  Age: 44 Year
  Sex: Male

DRUGS (20)
  1. CAPECITABINE/500MG [Suspect]
     Active Substance: CAPECITABINE
     Indication: BREAST CANCER FEMALE
     Dosage: DAY1- DAY 14
     Route: 048
     Dates: start: 20200521
  2. LEVETIRACETA [Concomitant]
     Active Substance: LEVETIRACETAM
  3. ONDANSETRON [Concomitant]
     Active Substance: ONDANSETRON
  4. RANITIDINE. [Concomitant]
     Active Substance: RANITIDINE
  5. GABAPENTIN. [Concomitant]
     Active Substance: GABAPENTIN
  6. CHOLECALCIFE [Concomitant]
  7. PSEDOEPHEDR [Concomitant]
  8. CYCLOPHOSPH [Concomitant]
  9. DEXAMETHASON [Concomitant]
     Active Substance: DEXAMETHASONE
  10. DIPHENHYDRAM [Concomitant]
  11. MULTIVITAMIN [Concomitant]
     Active Substance: VITAMINS
  12. OXYCODONE [Concomitant]
     Active Substance: OXYCODONE
  13. FERROUS [Concomitant]
     Active Substance: IRON
  14. CYCLOPHOSPHAMIDE/25MG [Suspect]
     Active Substance: CYCLOPHOSPHAMIDE
     Indication: BREAST CANCER FEMALE
     Dosage: ?          OTHER FREQUENCY:D1-D14 OF 28;?
     Route: 048
     Dates: start: 20200521
  15. CYCLOPHOSPHAMIDE/25MG [Suspect]
     Active Substance: CYCLOPHOSPHAMIDE
  16. CARBOXYMETHY [Concomitant]
  17. CETRIZINE [Concomitant]
     Active Substance: CETIRIZINE HYDROCHLORIDE
  18. OMEPRAZOLE. [Concomitant]
     Active Substance: OMEPRAZOLE
  19. PROPYLENE [Concomitant]
  20. SENNOSIDES. [Concomitant]
     Active Substance: SENNOSIDES

REACTIONS (1)
  - Death [None]
